FAERS Safety Report 18945660 (Version 1)
Quarter: 2021Q1

REPORT INFORMATION
  Report Type: Spontaneous
  Country: US (occurrence: US)
  Receive Date: 20210226
  Receipt Date: 20210226
  Transmission Date: 20210420
  Serious: Yes (Hospitalization, Other)
  Sender: FDA-Public Use
  Company Number: US-ORGANON-1402USA004141

PATIENT
  Sex: Female
  Weight: 54.42 kg

DRUGS (1)
  1. FOSAMAX [Suspect]
     Active Substance: ALENDRONATE SODIUM
     Indication: OSTEOPENIA
     Dosage: 70 MILLIGRAM
     Route: 048
     Dates: start: 2002

REACTIONS (9)
  - Open reduction of fracture [Unknown]
  - Osteopenia [Unknown]
  - Intramedullary rod insertion [Unknown]
  - Femur fracture [Recovering/Resolving]
  - Osteoporosis postmenopausal [Unknown]
  - Degenerative bone disease [Unknown]
  - Scoliosis [Unknown]
  - Femur fracture [Unknown]
  - Anxiety [Unknown]

NARRATIVE: CASE EVENT DATE: 200607
